FAERS Safety Report 7003589-1 (Version None)
Quarter: 2010Q3

REPORT INFORMATION
  Report Type: 
  Country: None (occurrence: None)
  Receive Date: 20100916
  Receipt Date: 20100906
  Transmission Date: 20110219
  Serious: Yes (Hospitalization)
  Sender: FDA-Public Use
  Company Number: 2010-3086

PATIENT
  Age: 69 Year
  Sex: Male

DRUGS (1)
  1. APO-GO AMPOULES (APO-GO) (APOMORPHINE HYDROCHLORIDE) (APOMORPHINE HYDR [Suspect]
     Indication: PRODUCT USED FOR UNKNOWN INDICATION
     Dosage: (,CONTINUOUS), SUBCUTANEOUS
     Route: 058
     Dates: end: 20100830

REACTIONS (1)
  - GENERAL PHYSICAL HEALTH DETERIORATION [None]
